FAERS Safety Report 25482130 (Version 1)
Quarter: 2025Q2

REPORT INFORMATION
  Report Type: Spontaneous
  Country: US (occurrence: US)
  Receive Date: 20250626
  Receipt Date: 20250626
  Transmission Date: 20250717
  Serious: Yes (Other)
  Sender: NOVO NORDISK
  Company Number: US-NOVOPROD-1464149

PATIENT
  Sex: Female

DRUGS (1)
  1. OZEMPIC [Suspect]
     Active Substance: SEMAGLUTIDE
     Indication: Blood glucose abnormal

REACTIONS (5)
  - Impaired driving ability [Unknown]
  - Blood glucose decreased [Unknown]
  - Oedema [Unknown]
  - Cognitive disorder [Unknown]
  - Blood glucose abnormal [Unknown]
